FAERS Safety Report 24980060 (Version 2)
Quarter: 2025Q1

REPORT INFORMATION
  Report Type: Spontaneous
  Country: BR (occurrence: BR)
  Receive Date: 20250218
  Receipt Date: 20250306
  Transmission Date: 20250409
  Serious: Yes (Other)
  Sender: Phathom Pharmaceuticals
  Company Number: BR-PHATHOM PHARMACEUTICALS INC.-2025PHT00320

PATIENT
  Sex: Female
  Weight: 26 kg

DRUGS (3)
  1. VONOPRAZAN FUMARATE [Suspect]
     Active Substance: VONOPRAZAN FUMARATE
     Indication: Oesophageal stenosis
     Dosage: 10 MILLIGRAM, QD
     Route: 065
     Dates: start: 202411
  2. VONOPRAZAN FUMARATE [Suspect]
     Active Substance: VONOPRAZAN FUMARATE
     Indication: Oesophageal ulcer
     Dosage: 20 MILLIGRAM, QD
     Route: 065
  3. SUCRALFATE [Concomitant]
     Active Substance: SUCRALFATE

REACTIONS (8)
  - Adverse event [Unknown]
  - Oesophageal ulcer [Unknown]
  - Product use in unapproved indication [Unknown]
  - Pain [Unknown]
  - Wrong technique in product usage process [Unknown]
  - Feeding disorder [Unknown]
  - Gluten sensitivity [Unknown]
  - Lactose intolerance [Unknown]
